FAERS Safety Report 8080665-6 (Version None)
Quarter: 2012Q1

REPORT INFORMATION
  Report Type: 
  Country: None (occurrence: None)
  Receive Date: 20120130
  Receipt Date: 20120123
  Transmission Date: 20120608
  Serious: Yes (Death, Other)
  Sender: FDA-Public Use
  Company Number: PHHY2012CN005745

PATIENT
  Age: 48 Year
  Sex: Male

DRUGS (4)
  1. NEUPOGEN [Concomitant]
     Indication: GRAFT VERSUS HOST DISEASE
  2. CYCLOSPORINE [Suspect]
     Indication: GRAFT VERSUS HOST DISEASE
  3. METHYLPREDNISOLONE [Concomitant]
     Indication: GRAFT VERSUS HOST DISEASE
     Dosage: 500 MG, QD
     Route: 042
  4. MYCOPHENOLATE MOFETIL [Concomitant]
     Indication: GRAFT VERSUS HOST DISEASE

REACTIONS (11)
  - MULTI-ORGAN FAILURE [None]
  - WHITE BLOOD CELL COUNT DECREASED [None]
  - NO THERAPEUTIC RESPONSE [None]
  - SEPSIS [None]
  - HYPERPYREXIA [None]
  - ENTEROBACTER INFECTION [None]
  - LUNG INFECTION [None]
  - PLATELET COUNT DECREASED [None]
  - CANDIDIASIS [None]
  - DIARRHOEA [None]
  - BONE MARROW FAILURE [None]
